FAERS Safety Report 14744332 (Version 7)
Quarter: 2018Q3

REPORT INFORMATION
  Report Type: Report from Study
  Country: US (occurrence: US)
  Receive Date: 20180411
  Receipt Date: 20180718
  Transmission Date: 20181010
  Serious: Yes (Hospitalization, Other)
  Sender: FDA-Public Use
  Company Number: US-GILEAD-2018-0331841

PATIENT
  Age: 37 Year
  Sex: Male

DRUGS (6)
  1. AMBRISENTAN [Suspect]
     Active Substance: AMBRISENTAN
     Dosage: 5 MG, QD
     Route: 065
     Dates: end: 201804
  2. AMBRISENTAN [Suspect]
     Active Substance: AMBRISENTAN
     Indication: PRODUCT USED FOR UNKNOWN INDICATION
     Dosage: 10 MG, QD
     Route: 065
     Dates: start: 20160914
  3. AMBRISENTAN [Suspect]
     Active Substance: AMBRISENTAN
     Dosage: 10 MG, UNK
     Route: 065
     Dates: start: 201804
  4. SUDAFED [Suspect]
     Active Substance: PSEUDOEPHEDRINE HYDROCHLORIDE
     Indication: PRODUCT USED FOR UNKNOWN INDICATION
     Dosage: UNK
     Route: 065
  5. OXYGEN. [Concomitant]
     Active Substance: OXYGEN
  6. AMBRISENTAN [Suspect]
     Active Substance: AMBRISENTAN
     Dosage: 5 MG, QD
     Route: 065
     Dates: start: 20160914

REACTIONS (22)
  - Heart rate increased [Unknown]
  - Arthralgia [Unknown]
  - Nasal congestion [Unknown]
  - Peripheral swelling [Not Recovered/Not Resolved]
  - Thrombosis [Unknown]
  - Allergy to plants [Not Recovered/Not Resolved]
  - Headache [Unknown]
  - Joint swelling [Not Recovered/Not Resolved]
  - Oxygen saturation decreased [Unknown]
  - Sinusitis [Unknown]
  - Arthralgia [Not Recovered/Not Resolved]
  - Off label use [Not Recovered/Not Resolved]
  - Anaemia [Unknown]
  - Wrong technique in product usage process [Recovered/Resolved]
  - Dyspnoea [Unknown]
  - Swelling [Not Recovered/Not Resolved]
  - Hepatitis [Unknown]
  - Chest pain [Unknown]
  - Neck pain [Unknown]
  - Facial pain [Unknown]
  - Nasal dryness [Unknown]
  - Pain in extremity [Not Recovered/Not Resolved]

NARRATIVE: CASE EVENT DATE: 2017
